FAERS Safety Report 7130778-8 (Version None)
Quarter: 2010Q4

REPORT INFORMATION
  Report Type: 
  Country: None (occurrence: None)
  Receive Date: 20101201
  Receipt Date: 20101122
  Transmission Date: 20110411
  Serious: Yes (Hospitalization)
  Sender: FDA-Public Use
  Company Number: BR-US-EMD SERONO, INC.-7029082

PATIENT
  Sex: Female

DRUGS (3)
  1. REBIF [Suspect]
     Indication: RELAPSING-REMITTING MULTIPLE SCLEROSIS
     Dates: start: 20100602
  2. TEGRETOL [Concomitant]
  3. TYLEX [Concomitant]

REACTIONS (5)
  - ABASIA [None]
  - ASTHENIA [None]
  - BONE PAIN [None]
  - HYPOAESTHESIA [None]
  - HYPOKINESIA [None]
